FAERS Safety Report 6391173-2 (Version None)
Quarter: 2009Q4

REPORT INFORMATION
  Report Type: 
  Country: None (occurrence: None)
  Receive Date: 20091006
  Receipt Date: 20091006
  Transmission Date: 20100525
  Serious: Yes (Life-Threatening, Hospitalization, Disabling)
  Sender: FDA-Public Use
  Company Number: None

PATIENT
  Sex: Male
  Weight: 87.5442 kg

DRUGS (1)
  1. DIVALPROIC ACID 500 MG [Suspect]
     Indication: CONVULSION PROPHYLAXIS
     Dosage: 1500 MG TWICE DAILY PO
     Route: 048
     Dates: start: 20090320, end: 20091005

REACTIONS (2)
  - GENERAL PHYSICAL HEALTH DETERIORATION [None]
  - PANCREATITIS ACUTE [None]
